FAERS Safety Report 14687060 (Version 5)
Quarter: 2018Q4

REPORT INFORMATION
  Report Type: Report from Study
  Country: GB (occurrence: GB)
  Receive Date: 20180327
  Receipt Date: 20181231
  Transmission Date: 20190204
  Serious: Yes (Other)
  Sender: FDA-Public Use
  Company Number: GB-BRISTOL-MYERS SQUIBB COMPANY-BMS-2017-021986

PATIENT
  Age: 80 Year
  Sex: Female

DRUGS (1)
  1. ABATACEPT [Suspect]
     Active Substance: ABATACEPT
     Indication: RHEUMATOID ARTHRITIS
     Dosage: 125 MG, QWK
     Route: 058
     Dates: start: 20160104

REACTIONS (11)
  - Pain [Unknown]
  - Product dose omission [Unknown]
  - Lower respiratory tract infection [Unknown]
  - Mouth ulceration [Unknown]
  - Arthritis [Unknown]
  - Drug ineffective [Unknown]
  - Pharyngeal ulceration [Unknown]
  - Arthralgia [Unknown]
  - Skin exfoliation [Unknown]
  - Malaise [Unknown]
  - Rheumatoid arthritis [Unknown]

NARRATIVE: CASE EVENT DATE: 20180316
